FAERS Safety Report 16693610 (Version 1)
Quarter: 2019Q3

REPORT INFORMATION
  Report Type: Spontaneous
  Country: US (occurrence: US)
  Receive Date: 20190812
  Receipt Date: 20190812
  Transmission Date: 20191004
  Serious: No
  Sender: FDA-Public Use
  Company Number: US-AMNEAL PHARMACEUTICALS-2018AMN00424

PATIENT
  Age: 69 Year
  Sex: Female

DRUGS (3)
  1. TRAMADOL HYDROCHLORIDE. [Suspect]
     Active Substance: TRAMADOL HYDROCHLORIDE
     Dosage: UNK
     Route: 065
  2. CELEBREX [Suspect]
     Active Substance: CELECOXIB
     Dosage: UNK
     Route: 065
  3. OCALIVA [Suspect]
     Active Substance: OBETICHOLIC ACID
     Indication: PRIMARY BILIARY CHOLANGITIS
     Dosage: 5 MG, 1X/DAY
     Route: 048
     Dates: start: 20180511

REACTIONS (15)
  - Anal incontinence [Unknown]
  - Oropharyngeal pain [Unknown]
  - Peripheral swelling [Unknown]
  - Pruritus [Unknown]
  - Fall [Recovered/Resolved]
  - Muscular weakness [Unknown]
  - Crying [Unknown]
  - Skin irritation [Unknown]
  - Cystitis [Unknown]
  - Hypersensitivity [Unknown]
  - Arthralgia [Unknown]
  - Mood altered [Unknown]
  - Dizziness [Unknown]
  - Fatigue [Unknown]
  - Joint swelling [Unknown]

NARRATIVE: CASE EVENT DATE: 20180512
